FAERS Safety Report 9241375 (Version 1)
Quarter: 2013Q2

REPORT INFORMATION
  Report Type: Spontaneous
  Country: US (occurrence: US)
  Receive Date: 20130418
  Receipt Date: 20130418
  Transmission Date: 20140414
  Serious: Yes (Other)
  Sender: FDA-Public Use
  Company Number: US-SANOFI-AVENTIS-2012SA085635

PATIENT
  Sex: Male

DRUGS (2)
  1. ENOXAPARIN SODIUM - WINTHROP [Suspect]
     Indication: DEEP VEIN THROMBOSIS
     Route: 065
     Dates: start: 2012
  2. ENOXAPARIN SODIUM - WINTHROP [Suspect]
     Indication: THROMBOSIS PROPHYLAXIS
     Route: 065
     Dates: start: 2012

REACTIONS (1)
  - Thrombosis [Not Recovered/Not Resolved]
